FAERS Safety Report 8801944 (Version 1)
Quarter: 2012Q4

REPORT INFORMATION
  Report Type: 
  Country: GB (occurrence: GB)
  Receive Date: 20120921
  Receipt Date: 20120921
  Transmission Date: 20130627
  Serious: Yes (Life-Threatening, Hospitalization)
  Sender: FDA-Public Use
  Company Number: PHHY2012GB081385

PATIENT
  Age: 0 Year
  Sex: Female
  Weight: 45 kg

DRUGS (2)
  1. FOLIC ACID [Suspect]
     Route: 064
  2. NIFEDIPINE [Suspect]
     Route: 064

REACTIONS (7)
  - Foetal growth restriction [Unknown]
  - Respiratory distress [Unknown]
  - Apnoea [Unknown]
  - Bradycardia [Unknown]
  - Hyperglycaemia [Unknown]
  - Pneumatosis [Unknown]
  - Foetal exposure during pregnancy [Unknown]
